FAERS Safety Report 7424346-8 (Version None)
Quarter: 2011Q2

REPORT INFORMATION
  Report Type: 
  Country: None (occurrence: None)
  Receive Date: 20110419
  Receipt Date: 20110413
  Transmission Date: 20111010
  Serious: Yes (Hospitalization, Other)
  Sender: FDA-Public Use
  Company Number: AT-CEPHALON-2011001914

PATIENT
  Sex: Male

DRUGS (3)
  1. DEXAMETHASONE [Suspect]
     Dates: start: 20101129
  2. BENDAMUSTINE HCL [Suspect]
     Indication: MULTIPLE MYELOMA
     Route: 042
     Dates: start: 20101129
  3. BORTEZOMIB [Suspect]
     Dates: start: 20101129

REACTIONS (3)
  - PYREXIA [None]
  - HYPOTENSION [None]
  - C-REACTIVE PROTEIN INCREASED [None]
